FAERS Safety Report 5986930-8 (Version None)
Quarter: 2008Q4

REPORT INFORMATION
  Report Type: 
  Country: None (occurrence: None)
  Receive Date: 20081209
  Receipt Date: 20080410
  Transmission Date: 20090506
  Serious: No
  Sender: FDA-Public Use
  Company Number: US-AMGEN-KDL270764

PATIENT
  Sex: Female
  Weight: 65.4 kg

DRUGS (10)
  1. ENBREL [Suspect]
     Indication: RHEUMATOID ARTHRITIS
     Route: 058
     Dates: start: 19990201
  2. LEFLUNOMIDE [Concomitant]
     Route: 048
     Dates: start: 19990101
  3. KCL-RETARD [Concomitant]
  4. SYNTHROID [Concomitant]
  5. PREMARIN [Concomitant]
  6. FOLIC ACID [Concomitant]
  7. ASCORBIC ACID [Concomitant]
  8. ASPIRIN [Concomitant]
  9. HYDROCHLOROTHIAZIDE [Concomitant]
  10. ZOCOR [Concomitant]

REACTIONS (8)
  - BLOOD CALCIUM DECREASED [None]
  - IMPAIRED HEALING [None]
  - POOR PERIPHERAL CIRCULATION [None]
  - RHEUMATOID ARTHRITIS [None]
  - THROMBOCYTOPENIA [None]
  - VENOUS INSUFFICIENCY [None]
  - WHITE BLOOD CELL COUNT DECREASED [None]
  - WOUND INFECTION BACTERIAL [None]
